FAERS Safety Report 4609946-2 (Version None)
Quarter: 2005Q1

REPORT INFORMATION
  Report Type: 
  Country: None (occurrence: None)
  Receive Date: 20050316
  Receipt Date: 20050304
  Transmission Date: 20050727
  Serious: Yes (Death, Hospitalization)
  Sender: FDA-Public Use
  Company Number: NO-BRISTOL-MYERS SQUIBB COMPANY-12890067

PATIENT
  Age: 85 Year
  Sex: Female

DRUGS (9)
  1. GLUCOPHAGE [Suspect]
     Indication: DIABETES MELLITUS
     Route: 048
     Dates: start: 20020101, end: 20050101
  2. ZESTRIL [Suspect]
     Indication: HYPERTENSION
     Route: 048
     Dates: end: 20050101
  3. CIPRALEX [Concomitant]
     Indication: DEMENTIA
     Route: 048
  4. ALBYL-E [Concomitant]
     Indication: CARDIOVASCULAR DISORDER
     Route: 048
  5. IMDUR [Concomitant]
     Indication: CARDIOVASCULAR DISORDER
     Route: 048
  6. ARICEPT [Concomitant]
     Indication: DEMENTIA
     Route: 048
  7. ZOCOR [Concomitant]
     Indication: CARDIOVASCULAR DISORDER
     Route: 048
  8. DIURAL [Concomitant]
     Indication: CARDIOVASCULAR DISORDER
     Route: 048
  9. SELO-ZOK [Concomitant]
     Indication: CARDIOVASCULAR DISORDER
     Route: 048

REACTIONS (5)
  - DEHYDRATION [None]
  - GASTROENTERITIS [None]
  - HYPOTENSION [None]
  - METABOLIC ACIDOSIS [None]
  - RENAL FAILURE ACUTE [None]
